FAERS Safety Report 5788405-8 (Version None)
Quarter: 2008Q2

REPORT INFORMATION
  Report Type: 
  Country: None (occurrence: None)
  Receive Date: 20080620
  Receipt Date: 20080617
  Transmission Date: 20081010
  Serious: Yes (Other)
  Sender: FDA-Public Use
  Company Number: 2008SP010999

PATIENT
  Age: 82 Year
  Sex: Male
  Weight: 78.0187 kg

DRUGS (7)
  1. CLARITIN-D 24 HOUR [Suspect]
     Indication: EYE PRURITUS
     Dosage: 1 DF;ONCE;PO
     Route: 048
     Dates: start: 20080603, end: 20080603
  2. CLARITIN-D 24 HOUR [Suspect]
     Indication: LACRIMATION INCREASED
     Dosage: 1 DF;ONCE;PO
     Route: 048
     Dates: start: 20080603, end: 20080603
  3. CLARITIN-D 24 HOUR [Suspect]
     Indication: NASAL CONGESTION
     Dosage: 1 DF;ONCE;PO
     Route: 048
     Dates: start: 20080603, end: 20080603
  4. CLARITIN-D 24 HOUR [Suspect]
     Indication: RHINORRHOEA
     Dosage: 1 DF;ONCE;PO
     Route: 048
     Dates: start: 20080603, end: 20080603
  5. CLARITIN-D 24 HOUR [Suspect]
     Indication: SINUS CONGESTION
     Dosage: 1 DF;ONCE;PO
     Route: 048
     Dates: start: 20080603, end: 20080603
  6. BLOOD PRESSURE MEDICATION [Concomitant]
  7. ANXIETY MEDICATION [Concomitant]

REACTIONS (1)
  - BLOOD PRESSURE INCREASED [None]
